FAERS Safety Report 10441806 (Version 1)
Quarter: 2014Q3

REPORT INFORMATION
  Report Type: Spontaneous
  Country: FR (occurrence: FR)
  Receive Date: 20140908
  Receipt Date: 20140908
  Transmission Date: 20150326
  Serious: Yes (Hospitalization, Other)
  Sender: FDA-Public Use
  Company Number: FR-PFIZER INC-2014247911

PATIENT
  Age: 69 Year
  Sex: Female

DRUGS (21)
  1. OMEPRAZOLE. [Suspect]
     Active Substance: OMEPRAZOLE
     Dosage: 8 MG, Q1HR
     Route: 042
     Dates: start: 20140623, end: 20140625
  2. PROGRAF [Suspect]
     Active Substance: TACROLIMUS\TACROLIMUS ANHYDROUS
     Dosage: 4.5 MG, 1X/DAY
     Route: 048
  3. LEVOTHYROX [Concomitant]
     Active Substance: LEVOTHYROXINE
     Dosage: UNK
     Dates: start: 2005
  4. LASILIX [Concomitant]
     Active Substance: FUROSEMIDE
     Dosage: UNK
  5. CALCIPARINE [Suspect]
     Active Substance: HEPARIN CALCIUM
     Dosage: 0.2 ML, 2X/DAY
     Route: 058
     Dates: start: 20140619, end: 20140622
  6. CALCIPARINE [Suspect]
     Active Substance: HEPARIN CALCIUM
     Dosage: UNK
     Route: 058
  7. ATENOLOL. [Concomitant]
     Active Substance: ATENOLOL
     Dosage: UNK
     Dates: start: 2011
  8. TAHOR [Concomitant]
     Active Substance: ATORVASTATIN CALCIUM
     Dosage: UNK
     Dates: start: 2012
  9. EUPANTOL [Suspect]
     Active Substance: PANTOPRAZOLE SODIUM
     Dosage: 40 MG, 2X/DAY
     Route: 048
     Dates: start: 20140626, end: 20140701
  10. CELLCEPT [Suspect]
     Active Substance: MYCOPHENOLATE MOFETIL\MYCOPHENOLATE MOFETIL HYDROCHLORIDE
     Dosage: 750 MG, 2X/DAY
     Route: 048
     Dates: start: 20140520, end: 20140624
  11. OROKEN [Concomitant]
     Active Substance: CEFIXIME
     Dosage: UNK
     Dates: start: 2005
  12. AMLOR [Concomitant]
     Active Substance: AMLODIPINE BESYLATE
     Dosage: UNK
     Dates: start: 201401
  13. RITUXIMAB [Concomitant]
     Active Substance: RITUXIMAB
     Dosage: 1 G, UNK
  14. BACTRIM [Suspect]
     Active Substance: SULFAMETHOXAZOLE\TRIMETHOPRIM
     Dosage: 1 UNK, 1X/DAY
     Route: 048
     Dates: start: 20140526, end: 20140623
  15. MOPRAL [Suspect]
     Active Substance: OMEPRAZOLE SODIUM
     Dosage: 20 MG, 1X/DAY
     Route: 048
     Dates: start: 20140526, end: 20140626
  16. CORTANCYL [Concomitant]
     Active Substance: PREDNISONE
     Dosage: UNK
     Dates: start: 1993
  17. APROVEL [Concomitant]
     Active Substance: IRBESARTAN
     Dosage: UNK
     Dates: end: 20140613
  18. ARANESP [Concomitant]
     Active Substance: DARBEPOETIN ALFA
     Dosage: 60 UG, WEEKLY
  19. NOVONORM [Concomitant]
     Active Substance: REPAGLINIDE
     Dosage: UNK
  20. NORFLOXACINE [Concomitant]
     Active Substance: NORFLOXACIN
     Dosage: UNK
     Dates: start: 2005
  21. CELLCEPT [Suspect]
     Active Substance: MYCOPHENOLATE MOFETIL\MYCOPHENOLATE MOFETIL HYDROCHLORIDE
     Dosage: 500 MG, 2X/DAY
     Route: 048
     Dates: end: 20140626

REACTIONS (3)
  - Loss of consciousness [Unknown]
  - Thrombocytopenia [Recovering/Resolving]
  - Leukopenia [Recovering/Resolving]

NARRATIVE: CASE EVENT DATE: 201406
